FAERS Safety Report 23449851 (Version 1)
Quarter: 2024Q1

REPORT INFORMATION
  Report Type: Spontaneous
  Country: US (occurrence: US)
  Receive Date: 20240129
  Receipt Date: 20240129
  Transmission Date: 20240410
  Serious: Yes (Death, Life-Threatening)
  Sender: FDA-Public Use
  Company Number: US-JNJFOC-20240155299

PATIENT
  Age: 30 Year
  Sex: Female

DRUGS (1)
  1. DIPHENHYDRAMINE HYDROCHLORIDE [Suspect]
     Active Substance: DIPHENHYDRAMINE HYDROCHLORIDE
     Indication: Suicide attempt
     Route: 048

REACTIONS (6)
  - Unresponsive to stimuli [Fatal]
  - Seizure [Fatal]
  - Blood pressure diastolic decreased [Fatal]
  - Tachycardia [Fatal]
  - Dry skin [Fatal]
  - Intentional overdose [Fatal]
